FAERS Safety Report 8247677-0 (Version None)
Quarter: 2012Q1

REPORT INFORMATION
  Report Type: 
  Country: None (occurrence: None)
  Receive Date: 20120330
  Receipt Date: 20120328
  Transmission Date: 20120608
  Serious: Yes (Hospitalization, Other)
  Sender: FDA-Public Use
  Company Number: BR-ABBOTT-12P-020-0919853-00

PATIENT
  Sex: Female
  Weight: 52 kg

DRUGS (11)
  1. AKINETON [Suspect]
     Indication: PARKINSON'S DISEASE
     Dosage: 1 TAB MORNING, 1 TAB EVENING
     Route: 048
  2. SUSTRATE [Concomitant]
     Indication: PRODUCT USED FOR UNKNOWN INDICATION
  3. HYGROTON [Concomitant]
     Indication: PRODUCT USED FOR UNKNOWN INDICATION
  4. SEROQUEL [Concomitant]
     Indication: PRODUCT USED FOR UNKNOWN INDICATION
  5. PROPAFENONE HCL [Suspect]
     Indication: PRODUCT USED FOR UNKNOWN INDICATION
  6. LUTEIN [Concomitant]
     Indication: PRODUCT USED FOR UNKNOWN INDICATION
  7. UNSPECIFIED DRUG-USTALEVO? [Concomitant]
     Indication: PARKINSON'S DISEASE
  8. UNSPECIFIED DRUG-RIVOXINA? [Concomitant]
     Indication: PRODUCT USED FOR UNKNOWN INDICATION
  9. ALDACTONE [Concomitant]
     Indication: PRODUCT USED FOR UNKNOWN INDICATION
  10. CITALOPRAM HYDROBROMIDE [Concomitant]
     Indication: PRODUCT USED FOR UNKNOWN INDICATION
  11. OMEPRAZOLE [Concomitant]
     Indication: HIATUS HERNIA
     Route: 048

REACTIONS (3)
  - PULMONARY CONGESTION [None]
  - CARDIAC FAILURE [None]
  - URINARY TRACT INFECTION [None]
